FAERS Safety Report 25821317 (Version 3)
Quarter: 2025Q4

REPORT INFORMATION
  Report Type: Report from Study
  Country: EU (occurrence: None)
  Receive Date: 20250919
  Receipt Date: 20251218
  Transmission Date: 20260117
  Serious: Yes (Hospitalization, Other)
  Sender: UCB
  Company Number: EU-UCBSA-2025056759

PATIENT
  Age: 65 Year

DRUGS (2)
  1. BIMEKIZUMAB [Suspect]
     Active Substance: BIMEKIZUMAB
     Indication: Psoriasis
     Dosage: 320 MILLIGRAM
  2. BIMEKIZUMAB [Suspect]
     Active Substance: BIMEKIZUMAB
     Dosage: 320 MILLIGRAM

REACTIONS (7)
  - Gastric cancer [Not Recovered/Not Resolved]
  - Cancer surgery [Not Recovered/Not Resolved]
  - Metastases to liver [Unknown]
  - Colon cancer [Unknown]
  - Large intestine operation [Unknown]
  - Fungal infection [Unknown]
  - Intentional dose omission [Unknown]
